FAERS Safety Report 9506701 (Version 1)
Quarter: 2013Q3

REPORT INFORMATION
  Report Type: Spontaneous
  Country: US (occurrence: US)
  Receive Date: 20130908
  Receipt Date: 20130908
  Transmission Date: 20140515
  Serious: Yes (Other)
  Sender: FDA-Public Use
  Company Number: US-SANOFI-AVENTIS-2013SA088616

PATIENT
  Age: 72 Year
  Sex: Female

DRUGS (16)
  1. DANAZOL [Suspect]
     Indication: GASTROINTESTINAL ANGIODYSPLASIA HAEMORRHAGIC
     Dosage: 100MG DAILY WITH MAXIMUM TITRATION TO 500MG
     Route: 065
     Dates: start: 200507, end: 200601
  2. DANAZOL [Suspect]
     Indication: GASTROINTESTINAL ANGIODYSPLASIA HAEMORRHAGIC
     Route: 065
     Dates: start: 2006
  3. DANAZOL [Suspect]
     Indication: GASTROINTESTINAL ANGIODYSPLASIA HAEMORRHAGIC
     Route: 065
     Dates: end: 2007
  4. DANAZOL [Suspect]
     Indication: GASTROINTESTINAL ANGIODYSPLASIA HAEMORRHAGIC
     Route: 065
     Dates: start: 2007
  5. DANAZOL [Suspect]
     Indication: GASTROINTESTINAL ANGIODYSPLASIA HAEMORRHAGIC
     Route: 065
     Dates: end: 200806
  6. OCTREOTIDE [Suspect]
     Indication: GASTROINTESTINAL ANGIODYSPLASIA HAEMORRHAGIC
     Route: 065
     Dates: start: 200507
  7. BLOOD CELLS, PACKED HUMAN [Concomitant]
     Dosage: DOSE:13 UNIT(S)
     Dates: start: 2002, end: 2002
  8. BLOOD CELLS, PACKED HUMAN [Concomitant]
     Dosage: DOSE:45 UNIT(S)
     Dates: start: 200501, end: 200507
  9. BLOOD CELLS, PACKED HUMAN [Concomitant]
     Dosage: DOSE:6 UNIT(S)
     Dates: start: 200508
  10. BLOOD CELLS, PACKED HUMAN [Concomitant]
     Dosage: DOSE:8 UNIT(S)
     Dates: start: 200607
  11. BLOOD CELLS, PACKED HUMAN [Concomitant]
     Dosage: DOSE:8 UNIT(S)
     Dates: start: 200703
  12. BLOOD CELLS, PACKED HUMAN [Concomitant]
     Dosage: DOSE:6 UNIT(S)
     Dates: start: 200704
  13. BLOOD CELLS, PACKED HUMAN [Concomitant]
     Dosage: DOSE:4 UNIT(S)
     Dates: start: 200708
  14. BLOOD CELLS, PACKED HUMAN [Concomitant]
     Dosage: DOSE:2 UNIT(S)
     Dates: start: 200711
  15. ANTIHAEMOPHILIC FACTOR VIII [Concomitant]
  16. AMINOCAPROIC ACID [Concomitant]

REACTIONS (4)
  - Drug-induced liver injury [Recovered/Resolved]
  - Off label use [Unknown]
  - Hepatic enzyme increased [Recovered/Resolved]
  - Abdominal pain [Unknown]
